FAERS Safety Report 7630258-7 (Version None)
Quarter: 2011Q3

REPORT INFORMATION
  Report Type: 
  Country: None (occurrence: None)
  Receive Date: 20110722
  Receipt Date: 20110708
  Transmission Date: 20111222
  Serious: Yes (Hospitalization)
  Sender: FDA-Public Use
  Company Number: PHHY2011US44072

PATIENT
  Age: 85 Year
  Sex: Female

DRUGS (6)
  1. METOPROLOL TARTRATE [Concomitant]
  2. EXELON [Concomitant]
  3. NAMENDA [Concomitant]
  4. NORVASC [Suspect]
     Dates: end: 20110511
  5. MICARDIS [Concomitant]
  6. DIOVAN [Suspect]

REACTIONS (4)
  - BLOOD PRESSURE INCREASED [None]
  - DRUG INEFFECTIVE [None]
  - OEDEMA PERIPHERAL [None]
  - JOINT SWELLING [None]
